FAERS Safety Report 19849243 (Version 1)
Quarter: 2021Q3

REPORT INFORMATION
  Report Type: Report from Study
  Country: US (occurrence: US)
  Receive Date: 20210917
  Receipt Date: 20210917
  Transmission Date: 20211014
  Serious: Yes (Hospitalization)
  Sender: FDA-Public Use
  Company Number: US-SAMSUNG BIOEPIS-SB-2021-21128

PATIENT
  Age: 26 Year
  Sex: Female
  Weight: 67.19 kg

DRUGS (13)
  1. RENFLEXIS [Suspect]
     Active Substance: INFLIXIMAB-ABDA
     Indication: COLITIS ULCERATIVE
     Route: 042
     Dates: start: 20210402, end: 20210514
  2. ZOFRAN [Concomitant]
     Active Substance: ONDANSETRON HYDROCHLORIDE
     Indication: NAUSEA
     Dosage: DISINTEGRATING TABLET AS NEEDED. DISP: 60 TABLET
     Route: 048
  3. FOLATE [Concomitant]
     Active Substance: FOLATE SODIUM
     Indication: PRODUCT USED FOR UNKNOWN INDICATION
     Dosage: ONE TABLET
     Route: 048
  4. IRON [Concomitant]
     Active Substance: IRON
     Indication: PRODUCT USED FOR UNKNOWN INDICATION
     Dosage: ONE TABLET
     Route: 048
  5. COENZYME Q10 [Concomitant]
     Active Substance: DIETARY SUPPLEMENT\UBIDECARENONE
     Indication: PRODUCT USED FOR UNKNOWN INDICATION
     Dosage: 0 DAYS 0 REFILL
     Route: 048
  6. SYNTHROID [Concomitant]
     Active Substance: LEVOTHYROXINE SODIUM
     Indication: PRODUCT USED FOR UNKNOWN INDICATION
     Route: 048
  7. CLASSIC PRENATAL [Concomitant]
     Indication: PRODUCT USED FOR UNKNOWN INDICATION
     Dosage: UNKNOWN. 28?0.8 MG 0 DAYS 0 REFILL
     Route: 048
  8. VITAMIN D [Concomitant]
     Active Substance: VITAMIN D NOS
     Indication: NAUSEA
     Dosage: 0 DAYS 0 REFILLS
     Route: 048
  9. PROBIOTIC [Concomitant]
     Active Substance: PROBIOTICS NOS
     Indication: PRODUCT USED FOR UNKNOWN INDICATION
     Dosage: ONE TABLET, UNKNOWN
     Route: 048
  10. B COMPLEX?C?IRON [Concomitant]
     Indication: PRODUCT USED FOR UNKNOWN INDICATION
     Dosage: UNKNOWN. 0 DAYS 0 REFILLS
     Route: 065
  11. SYNTHROID [Concomitant]
     Active Substance: LEVOTHYROXINE SODIUM
     Dosage: 0 DAYS 0 REFILLS
     Route: 048
  12. OMEGA 3 [Concomitant]
     Active Substance: OMEGA-3 FATTY ACIDS
     Indication: PRODUCT USED FOR UNKNOWN INDICATION
     Dosage: UNKNOWN. 2 CAPSULES
     Route: 048
  13. REMICADE [Concomitant]
     Active Substance: INFLIXIMAB
     Indication: COLITIS ULCERATIVE
     Route: 042

REACTIONS (14)
  - Abdominal pain [Unknown]
  - Abnormal loss of weight [Unknown]
  - Burning sensation [Recovered/Resolved]
  - Diarrhoea [Unknown]
  - Frequent bowel movements [Unknown]
  - Product use issue [Unknown]
  - Dermatitis allergic [Unknown]
  - Dyspnoea [Unknown]
  - Chest discomfort [Unknown]
  - Cervical dysplasia [Unknown]
  - Drug intolerance [Unknown]
  - Pruritus [Recovering/Resolving]
  - Tachycardia [Unknown]
  - Photosensitivity reaction [Unknown]

NARRATIVE: CASE EVENT DATE: 20210402
